FAERS Safety Report 7954883-9 (Version None)
Quarter: 2011Q4

REPORT INFORMATION
  Report Type: 
  Country: None (occurrence: None)
  Receive Date: 20111202
  Receipt Date: 20111129
  Transmission Date: 20120403
  Serious: Yes (Other)
  Sender: FDA-Public Use
  Company Number: US-MERCK-1108USA03353

PATIENT
  Age: 70 Year
  Sex: Male

DRUGS (3)
  1. ROGAINE [Concomitant]
     Route: 065
  2. PROSCAR [Suspect]
     Route: 048
     Dates: start: 20010101, end: 20070101
  3. PROSCAR [Suspect]
     Indication: ALOPECIA
     Route: 048
     Dates: start: 20070101, end: 20110601

REACTIONS (8)
  - BREAST PAIN [None]
  - ERECTILE DYSFUNCTION [None]
  - WRONG TECHNIQUE IN DRUG USAGE PROCESS [None]
  - INTENTIONAL DRUG MISUSE [None]
  - RENAL CANCER [None]
  - RENAL DISORDER [None]
  - GYNAECOMASTIA [None]
  - BREAST TENDERNESS [None]
